FAERS Safety Report 4981789-X (Version None)
Quarter: 2006Q2

REPORT INFORMATION
  Report Type: 
  Country: None (occurrence: None)
  Receive Date: 20060420
  Receipt Date: 20060420
  Transmission Date: 20061013
  Serious: No
  Sender: FDA-Public Use
  Company Number: None

PATIENT
  Age: 77 Year
  Sex: Male

DRUGS (1)
  1. LYRICA [Suspect]
     Indication: NEUROPATHY PERIPHERAL
     Dosage: ORAL; 150.0 MILLIGRAM BID
     Route: 048
     Dates: start: 20051213, end: 20051223

REACTIONS (7)
  - ATRIAL FIBRILLATION [None]
  - DRUG PRESCRIBING ERROR [None]
  - FATIGUE [None]
  - INCORRECT DOSE ADMINISTERED [None]
  - MENTAL STATUS CHANGES [None]
  - NIGHTMARE [None]
  - SOMNOLENCE [None]
